FAERS Safety Report 11239354 (Version 2)
Quarter: 2015Q3

REPORT INFORMATION
  Report Type: Report from Study
  Country: CA (occurrence: None)
  Receive Date: 20150701
  Receipt Date: 20150708
  Transmission Date: 20151125
  Serious: Yes (Hospitalization)
  Sender: FDA-Public Use
  Company Number: 2015FE02148

PATIENT
  Age: 82 Year
  Sex: Male

DRUGS (1)
  1. DEGARELIX [Suspect]
     Active Substance: DEGARELIX
     Indication: PROSTATE CANCER
     Dosage: 80 MG, MONTHLY, SUBCUTANEOUS
     Route: 058
     Dates: start: 20111021

REACTIONS (3)
  - Atrioventricular conduction time shortened [None]
  - Asthenia [None]
  - Fatigue [None]
